FAERS Safety Report 10012785 (Version 1)
Quarter: 2014Q1

REPORT INFORMATION
  Report Type: Spontaneous
  Country: CA (occurrence: CA)
  Receive Date: 20140314
  Receipt Date: 20140314
  Transmission Date: 20141002
  Serious: Yes (Other)
  Sender: FDA-Public Use
  Company Number: CHPA2014CA003776

PATIENT
  Age: 56 Year
  Sex: Female

DRUGS (2)
  1. BUCKLEY^S UNKNOWN [Suspect]
     Dosage: AS LABELED
     Route: 065
  2. BUCKLEY^S UNKNOWN [Suspect]
     Dosage: UNK UNK, ONCE/SINGLE
     Route: 065

REACTIONS (2)
  - Hyperthyroidism [Not Recovered/Not Resolved]
  - Nasopharyngitis [Not Recovered/Not Resolved]
